FAERS Safety Report 9778221 (Version 1)
Quarter: 2013Q4

REPORT INFORMATION
  Report Type: Report from Study
  Country: US (occurrence: US)
  Receive Date: 20131223
  Receipt Date: 20131223
  Transmission Date: 20140711
  Serious: Yes (Other)
  Sender: FDA-Public Use
  Company Number: GXBR2013US002148

PATIENT
  Age: 51 Year
  Sex: Female

DRUGS (7)
  1. ENOXAPARIN SODIUM [Suspect]
     Indication: ANTIPHOSPHOLIPID SYNDROME
     Dosage: 100 MG, BID
     Dates: start: 201107
  2. CYMBALTA [Concomitant]
     Indication: FIBROMYALGIA
     Dosage: 60 MG, QD
  3. GABAPENTIN [Concomitant]
     Indication: NEUROPATHY PERIPHERAL
     Dosage: 300 MG, QD
  4. GABAPENTIN [Concomitant]
     Indication: FIBROMYALGIA
  5. DEPLIN [Concomitant]
     Indication: ANAEMIA
     Dosage: 15 MG, QD
  6. TOPAMAX [Concomitant]
     Indication: MIGRAINE
     Dosage: 200 MG, QD
  7. NUCYNTA [Concomitant]
     Indication: PAIN
     Dosage: 150 MG, BID

REACTIONS (8)
  - Epilepsy [Not Recovered/Not Resolved]
  - Sleep apnoea syndrome [Not Recovered/Not Resolved]
  - Epstein-Barr virus infection [Not Recovered/Not Resolved]
  - Weight decreased [Not Recovered/Not Resolved]
  - Decreased appetite [Not Recovered/Not Resolved]
  - Hypothyroidism [Not Recovered/Not Resolved]
  - Injection site mass [Not Recovered/Not Resolved]
  - Injection site bruising [Not Recovered/Not Resolved]
